FAERS Safety Report 9276531 (Version 1)
Quarter: 2013Q2

REPORT INFORMATION
  Report Type: Spontaneous
  Country: SE (occurrence: SE)
  Receive Date: 20130507
  Receipt Date: 20130507
  Transmission Date: 20140414
  Serious: Yes (Hospitalization)
  Sender: FDA-Public Use
  Company Number: SE-BAYER-2013-056316

PATIENT
  Age: 21 Year
  Sex: Female

DRUGS (1)
  1. YASMIN [Suspect]
     Dosage: UNK
     Route: 048
     Dates: end: 201302

REACTIONS (5)
  - Papilloedema [Unknown]
  - Cerebral venous thrombosis [Unknown]
  - Nausea [Unknown]
  - Headache [Unknown]
  - Diplopia [Unknown]
